FAERS Safety Report 4837815-1 (Version None)
Quarter: 2005Q4

REPORT INFORMATION
  Report Type: 
  Country: None (occurrence: None)
  Receive Date: 20051128
  Receipt Date: 20051004
  Transmission Date: 20060501
  Serious: Yes (Hospitalization, Disabling)
  Sender: FDA-Public Use
  Company Number: US-MERCK-0510USA02295

PATIENT
  Age: 54 Year
  Sex: Male
  Weight: 123 kg

DRUGS (15)
  1. VIOXX [Suspect]
     Indication: ARTHRITIS
     Route: 048
     Dates: start: 20011030, end: 20030920
  2. HYDROCODONE BITARTRATE [Concomitant]
     Route: 065
  3. POTASSIUM CHLORIDE [Concomitant]
     Route: 065
  4. ALLOPURINOL [Concomitant]
     Route: 065
  5. BEXTRA [Concomitant]
     Route: 065
  6. DILTIA XT [Concomitant]
     Route: 065
  7. ZESTORETIC [Concomitant]
     Route: 065
  8. GLUCOPHAGE [Concomitant]
     Route: 065
  9. DIPROLENE [Concomitant]
     Route: 065
  10. ACETAMINOPHEN [Concomitant]
     Route: 065
  11. METFORMIN [Concomitant]
     Route: 065
  12. ACETAMINOPHEN AND CODEINE [Concomitant]
     Route: 065
  13. HYDROXYCHLOROQUINE SULFATE [Concomitant]
     Route: 065
  14. FUROSEMIDE [Concomitant]
     Route: 065
  15. [THERAPY UNSPECIFIED] [Concomitant]
     Route: 065

REACTIONS (6)
  - ANGINA PECTORIS [None]
  - CORONARY ARTERY DISEASE [None]
  - DEPRESSION [None]
  - GOUT [None]
  - MYOCARDIAL INFARCTION [None]
  - RHEUMATOID NODULE [None]
